FAERS Safety Report 24577879 (Version 1)
Quarter: 2024Q4

REPORT INFORMATION
  Report Type: Spontaneous
  Country: US (occurrence: US)
  Receive Date: 20241104
  Receipt Date: 20241104
  Transmission Date: 20250115
  Serious: No
  Sender: EMERGENT BIOSOLUTIONS
  Company Number: US-Emergent Biosolutions-24000178

PATIENT

DRUGS (1)
  1. NARCAN [Suspect]
     Active Substance: NALOXONE HYDROCHLORIDE
     Indication: Product used for unknown indication
     Dosage: UNK
     Route: 065

REACTIONS (2)
  - Throat irritation [Unknown]
  - Wrong technique in product usage process [Unknown]
